FAERS Safety Report 16508994 (Version 1)
Quarter: 2019Q3

REPORT INFORMATION
  Report Type: Spontaneous
  Country: US (occurrence: US)
  Receive Date: 20190701
  Receipt Date: 20190701
  Transmission Date: 20191004
  Serious: Yes (Hospitalization)
  Sender: FDA-Public Use
  Company Number: None

PATIENT
  Age: 47 Year
  Sex: Male
  Weight: 77.2 kg

DRUGS (2)
  1. ZEMURON [Concomitant]
     Active Substance: ROCURONIUM BROMIDE
     Dates: start: 20190625, end: 20190625
  2. SUGAMMADEX [Suspect]
     Active Substance: SUGAMMADEX
     Indication: NEUROMUSCULAR BLOCKADE REVERSAL
     Dosage: ?          OTHER FREQUENCY:ONE TIME DOSE;?
     Route: 040
     Dates: start: 20190625, end: 20190625

REACTIONS (1)
  - Pulmonary oedema [None]

NARRATIVE: CASE EVENT DATE: 20190625
